FAERS Safety Report 4778347-9 (Version None)
Quarter: 2005Q3

REPORT INFORMATION
  Report Type: 
  Country: None (occurrence: None)
  Receive Date: 20050923
  Receipt Date: 20050923
  Transmission Date: 20060218
  Serious: Yes (Hospitalization)
  Sender: FDA-Public Use
  Company Number: None

PATIENT
  Age: 64 Year
  Sex: Female
  Weight: 86 kg

DRUGS (1)
  1. CARBAMAZEPINE [Suspect]
     Dosage: 200MG    BID    PO
     Route: 048
     Dates: start: 20050820, end: 20050914

REACTIONS (1)
  - DRUG ERUPTION [None]
